FAERS Safety Report 6575561-7 (Version None)
Quarter: 2010Q1

REPORT INFORMATION
  Report Type: 
  Country: None (occurrence: None)
  Receive Date: 20100208
  Receipt Date: 20100208
  Transmission Date: 20100710
  Serious: Yes (Other)
  Sender: FDA-Public Use
  Company Number: None

PATIENT
  Sex: Female
  Weight: 86.4 kg

DRUGS (1)
  1. WARFARIN SODIUM [Suspect]
     Indication: EMBOLISM VENOUS
     Dosage: WARFARIN 2 5MG 1-2 DAILY ORAL
     Route: 048
     Dates: start: 20061201, end: 20080701

REACTIONS (2)
  - DIARRHOEA [None]
  - VOMITING [None]
